FAERS Safety Report 4538296-8 (Version None)
Quarter: 2004Q4

REPORT INFORMATION
  Report Type: 
  Country: None (occurrence: None)
  Receive Date: 20041221
  Receipt Date: 20041210
  Transmission Date: 20050328
  Serious: Yes (Hospitalization)
  Sender: FDA-Public Use
  Company Number: 2004PK02109

PATIENT
  Age: 57 Year
  Sex: Female
  Weight: 68 kg

DRUGS (16)
  1. NEXIUM [Suspect]
     Indication: GASTRITIS
  2. FLUOROURACIL [Suspect]
     Indication: BREAST CANCER
     Dosage: 850 MG DAILY IV
     Route: 042
     Dates: start: 20031113, end: 20031113
  3. FLUOROURACIL [Suspect]
     Indication: BREAST CANCER
     Dosage: 850 MG DAILY IV
     Route: 042
     Dates: start: 20031120, end: 20031120
  4. FLUOROURACIL [Suspect]
     Indication: BREAST CANCER
     Dosage: 648 MG DAILY IV
     Route: 042
     Dates: start: 20031216, end: 20031216
  5. FLUOROURACIL [Suspect]
     Indication: BREAST CANCER
     Dosage: 648 MG DAILY IV
     Route: 042
     Dates: start: 20031223, end: 20031223
  6. FLUOROURACIL [Suspect]
     Indication: BREAST CANCER
     Dosage: 432 MG DAILY IV
     Route: 042
     Dates: start: 20040217, end: 20040217
  7. FLUOROURACIL [Suspect]
     Indication: BREAST CANCER
     Dosage: 432 MG DAILY IV
     Route: 042
     Dates: start: 20040224, end: 20040224
  8. EPIRUBICIN [Suspect]
     Indication: BREAST CANCER
     Dosage: 102 M G DAILY IV
     Route: 042
     Dates: start: 20031113, end: 20031113
  9. EPIRUBICIN [Suspect]
     Indication: BREAST CANCER
     Dosage: 102 MG DAILY IV
     Route: 042
     Dates: start: 20031120, end: 20031120
  10. EPIRUBICIN [Suspect]
     Indication: BREAST CANCER
     Dosage: 77.85 MG DAILY IV
     Route: 042
     Dates: start: 20031216, end: 20031216
  11. EPIRUBICIN [Suspect]
     Indication: BREAST CANCER
     Dosage: 77.85 MG DAILY IV
     Route: 042
     Dates: start: 20031223, end: 20031223
  12. EPIRUBICIN [Suspect]
     Indication: BREAST CANCER
     Dosage: 51.9 MG DAILY IV
     Route: 042
     Dates: start: 20040217, end: 20040217
  13. EPIRUBICIN [Suspect]
     Indication: BREAST CANCER
     Dosage: 51.9 MG DAILY IV
     Route: 042
     Dates: start: 20040224, end: 20040224
  14. ENDOXAN [Suspect]
     Indication: BREAST CANCER
     Dosage: 150 MG DAILY PO
     Route: 048
     Dates: start: 20031117, end: 20031126
  15. ENDOXAN [Suspect]
     Indication: BREAST CANCER
     Dosage: 100 MG DAILY PO
     Route: 048
     Dates: start: 20031216, end: 20031229
  16. CYCLOPHOSPHAMIDE [Suspect]
     Indication: BREAST CANCER
     Dosage: 100 MG DAILY PO
     Route: 048
     Dates: start: 20040217, end: 20040229

REACTIONS (2)
  - ANAEMIA [None]
  - BENIGN BREAST NEOPLASM [None]
